FAERS Safety Report 5709319-5 (Version None)
Quarter: 2008Q2

REPORT INFORMATION
  Report Type: 
  Country: None (occurrence: None)
  Receive Date: 20080418
  Receipt Date: 20080414
  Transmission Date: 20081010
  Serious: Yes (Hospitalization)
  Sender: FDA-Public Use
  Company Number: JP-WYE-H02436608

PATIENT
  Sex: Female
  Weight: 55 kg

DRUGS (19)
  1. TAZOCIN [Suspect]
     Indication: CHOLECYSTITIS
     Route: 041
     Dates: start: 20080118, end: 20080124
  2. TAZOCIN [Suspect]
     Route: 041
     Dates: start: 20080116, end: 20080117
  3. ELECTROLYTE SOLUTIONS [Concomitant]
     Indication: FLUID REPLACEMENT
     Route: 041
     Dates: start: 20080118
  4. VITAMINS NOS [Concomitant]
     Indication: FLUID REPLACEMENT
     Route: 041
     Dates: start: 20080118
  5. ASCORBIC ACID [Concomitant]
     Indication: NUTRITIONAL SUPPORT
     Route: 041
     Dates: start: 20080118
  6. RIBOFLAVIN TAB [Concomitant]
     Indication: FLUID REPLACEMENT
     Route: 041
     Dates: start: 20080118
  7. THIAMINE DISULFIDE [Concomitant]
     Indication: FLUID REPLACEMENT
     Route: 041
     Dates: start: 20080118
  8. PYRIDOXINE HYDROCHLORIDE [Concomitant]
     Indication: FLUID REPLACEMENT
     Route: 041
     Dates: start: 20080118
  9. VITAMIN B-12 [Concomitant]
     Indication: FLUID REPLACEMENT
     Route: 041
     Dates: start: 20080118
  10. AMLODIN [Concomitant]
     Indication: HYPERTENSION
     Dosage: UNKNOWN DOSE AND FREQUENCY
     Route: 048
  11. DIOVAN [Concomitant]
     Indication: HYPERTENSION
     Route: 048
     Dates: end: 20080126
  12. NIZATIDINE [Concomitant]
     Indication: MYOCARDIAL INFARCTION
     Route: 048
  13. ASPIRIN [Concomitant]
     Indication: MYOCARDIAL INFARCTION
     Route: 048
  14. ALEVIATIN [Concomitant]
     Indication: SUBDURAL HAEMORRHAGE
     Route: 048
  15. MAGNESIUM OXIDE [Concomitant]
     Indication: CONSTIPATION
     Route: 048
  16. ARTIST [Concomitant]
     Indication: HYPERTENSION
     Route: 048
     Dates: end: 20080126
  17. CALONAL [Concomitant]
     Indication: SUBDURAL HAEMORRHAGE
     Dosage: UNKNOWN DOSE AND FREQUENCY
     Route: 048
     Dates: end: 20080126
  18. PIPERACILLIN SODIUM [Suspect]
     Indication: CHOLECYSTITIS
     Route: 041
     Dates: start: 20080116, end: 20080124
  19. AMINO ACIDS NOS [Concomitant]
     Indication: FLUID REPLACEMENT
     Route: 041
     Dates: start: 20080118

REACTIONS (2)
  - EOSINOPHIL PERCENTAGE INCREASED [None]
  - INTERSTITIAL LUNG DISEASE [None]
